FAERS Safety Report 7824970-4 (Version None)
Quarter: 2011Q4

REPORT INFORMATION
  Report Type: 
  Country: None (occurrence: None)
  Receive Date: 20111019
  Receipt Date: 20110419
  Transmission Date: 20120403
  Serious: No
  Sender: FDA-Public Use
  Company Number: US-BRISTOL-MYERS SQUIBB COMPANY-15621709

PATIENT
  Age: 53 Year
  Sex: Female

DRUGS (5)
  1. CORTISONE ACETATE [Concomitant]
     Dosage: CORTISONE INJECTIONS
  2. AVALIDE [Suspect]
     Dates: end: 20110201
  3. TRAMADOL HCL [Concomitant]
  4. VICODIN [Concomitant]
  5. SYMBICORT [Concomitant]

REACTIONS (5)
  - LABILE BLOOD PRESSURE [None]
  - JOINT SWELLING [None]
  - MUSCLE TWITCHING [None]
  - BACK PAIN [None]
  - NAUSEA [None]
